FAERS Safety Report 13316413 (Version 5)
Quarter: 2017Q3

REPORT INFORMATION
  Report Type: Report from Study
  Country: CA (occurrence: CA)
  Receive Date: 20170310
  Receipt Date: 20170719
  Transmission Date: 20171127
  Serious: Yes (Hospitalization, Other)
  Sender: FDA-Public Use
  Company Number: CA-009507513-1702CAN005889

PATIENT
  Age: 65 Year
  Sex: Female
  Weight: 49 kg

DRUGS (2)
  1. PEMBROLIZUMAB. [Suspect]
     Active Substance: PEMBROLIZUMAB
     Indication: NON-SMALL CELL LUNG CANCER
     Dosage: 100 MG, ONCE EVERY 3 WEEKS (STRENGTH: 2MG/KG)
     Route: 042
     Dates: start: 20170127, end: 2017
  2. PEMBROLIZUMAB. [Suspect]
     Active Substance: PEMBROLIZUMAB
     Dosage: 100 MG, ONCE EVERY 3 WEEKS (STRENGTH: 2MG/K
     Route: 042
     Dates: start: 20170329

REACTIONS (19)
  - Endotracheal intubation [Recovered/Resolved]
  - Hypertension [Recovered/Resolved]
  - Abdominal pain upper [Recovered/Resolved]
  - Obstructive airways disorder [Unknown]
  - Hypertension [Unknown]
  - Weight decreased [Unknown]
  - Hypotension [Unknown]
  - Hypotension [Unknown]
  - Stent placement [Unknown]
  - Stent malfunction [Unknown]
  - Dyspnoea [Unknown]
  - Clostridium difficile infection [Unknown]
  - Lung neoplasm surgery [Unknown]
  - Weight fluctuation [Unknown]
  - Bronchitis [Unknown]
  - Myalgia [Recovered/Resolved]
  - Chills [Recovered/Resolved]
  - Complication associated with device [Unknown]
  - Weight fluctuation [Unknown]

NARRATIVE: CASE EVENT DATE: 2017
